FAERS Safety Report 11391505 (Version 1)
Quarter: 2015Q3

REPORT INFORMATION
  Report Type: Spontaneous
  Country: PL (occurrence: PL)
  Receive Date: 20150818
  Receipt Date: 20150818
  Transmission Date: 20151125
  Serious: Yes (Other)
  Sender: FDA-Public Use
  Company Number: PL-SA-2015SA120819

PATIENT
  Sex: Female
  Weight: 55 kg

DRUGS (2)
  1. ARAVA [Suspect]
     Active Substance: LEFLUNOMIDE
     Dosage: DOSE: 1 X 100MG FOR THE FIRST THREE DAYS THEN 1X20MG,
     Route: 048
     Dates: start: 20130218
  2. ARAVA [Suspect]
     Active Substance: LEFLUNOMIDE
     Dosage: DOSE: 1 X 100MG FOR THE FIRST THREE DAYS THEN 1X20MG,
     Route: 048
     Dates: end: 201303

REACTIONS (1)
  - Transaminases increased [Recovered/Resolved]
